FAERS Safety Report 4528927-0 (Version None)
Quarter: 2004Q4

REPORT INFORMATION
  Report Type: 
  Country: None (occurrence: None)
  Receive Date: 20041214
  Receipt Date: 20041209
  Transmission Date: 20050328
  Serious: Yes (Other)
  Sender: FDA-Public Use
  Company Number: 200410610BYL

PATIENT
  Age: 77 Year
  Sex: Male

DRUGS (13)
  1. ADALAT CC [Suspect]
     Dosage: 20 MG, BID, ORAL
     Route: 048
     Dates: start: 19980501, end: 20040917
  2. WARFARIN SODIUM [Suspect]
     Dosage: 1 MG, QD, ORAL; SEE IMAGE
     Route: 048
     Dates: start: 20040219, end: 20040915
  3. WARFARIN SODIUM [Suspect]
     Dosage: 1 MG, QD, ORAL; SEE IMAGE
     Route: 048
     Dates: start: 20040918, end: 20041013
  4. WARFARIN SODIUM [Suspect]
     Dosage: 1 MG, QD, ORAL; SEE IMAGE
     Route: 048
     Dates: start: 20041014
  5. TSUMURA SHOU SEI RYUTO [Concomitant]
  6. DOGMATYL [Concomitant]
  7. AMOXAN [Concomitant]
  8. ANAFRANIL [Concomitant]
  9. SENIRAN [Concomitant]
  10. EVAMYL [Concomitant]
  11. PARAMIDIN [Concomitant]
  12. LASIX [Concomitant]
  13. TRYPTANOL [Concomitant]

REACTIONS (4)
  - COAGULOPATHY [None]
  - GINGIVAL BLEEDING [None]
  - HAEMATEMESIS [None]
  - LYMPHADENITIS [None]
